FAERS Safety Report 12592538 (Version 8)
Quarter: 2017Q2

REPORT INFORMATION
  Report Type: Spontaneous
  Country: US (occurrence: US)
  Receive Date: 20160726
  Receipt Date: 20170417
  Transmission Date: 20170830
  Serious: Yes (Death, Congenital Anomaly, Other)
  Sender: FDA-Public Use
  Company Number: PHEH2016US018264

PATIENT
  Sex: Female

DRUGS (2)
  1. ZOFRAN [Suspect]
     Active Substance: ONDANSETRON HYDROCHLORIDE
     Indication: FOETAL EXPOSURE DURING PREGNANCY
     Dosage: MOTHER DOSE: 4 MG, PRN
     Route: 064
  2. ONDANSETRON HYDROCHLORIDE. [Suspect]
     Active Substance: ONDANSETRON HYDROCHLORIDE
     Indication: FOETAL EXPOSURE DURING PREGNANCY
     Route: 064

REACTIONS (52)
  - Double outlet right ventricle [Unknown]
  - Neonatal hepatomegaly [Unknown]
  - Haemangioma of liver [Unknown]
  - Cardiomegaly [Unknown]
  - Renal failure neonatal [Not Recovered/Not Resolved]
  - Pneumothorax [Unknown]
  - Neonatal tachypnoea [Unknown]
  - Fever neonatal [Unknown]
  - Retching [Unknown]
  - Bicuspid aortic valve [Unknown]
  - Univentricular heart [Unknown]
  - Portal vein thrombosis [Unknown]
  - Atelectasis neonatal [Not Recovered/Not Resolved]
  - Bradycardia [Unknown]
  - Diarrhoea [Unknown]
  - Hypoplastic left heart syndrome [Unknown]
  - Atrial septal defect [Unknown]
  - Tricuspid valve incompetence [Unknown]
  - Acute kidney injury [Unknown]
  - Neonatal respiratory failure [Unknown]
  - Sepsis neonatal [Unknown]
  - Thrombocytopenia neonatal [Unknown]
  - Dysphagia [Unknown]
  - Vomiting [Unknown]
  - Death [Fatal]
  - Cytogenetic abnormality [Unknown]
  - Heart disease congenital [Unknown]
  - Right-to-left cardiac shunt [Unknown]
  - Cyanosis neonatal [Unknown]
  - Injury [Unknown]
  - Mitral valve atresia [Unknown]
  - Cardiac disorder [Unknown]
  - Left-to-right cardiac shunt [Unknown]
  - Neonatal respiratory distress syndrome [Unknown]
  - Bacteraemia [Unknown]
  - Neonatal hypoxia [Unknown]
  - Congenital aortic valve stenosis [Unknown]
  - Patent ductus arteriosus [Unknown]
  - Aorta hypoplasia [Unknown]
  - Right ventricular hypertension [Unknown]
  - Failure to thrive [Unknown]
  - Cardiac arrest neonatal [Unknown]
  - Hypoglycaemia neonatal [Unknown]
  - Aortic valve atresia [Unknown]
  - Congenital great vessel anomaly [Unknown]
  - Foetal exposure during pregnancy [Unknown]
  - Haematemesis [Unknown]
  - Cardiac failure [Unknown]
  - Hypervolaemia [Unknown]
  - Poor weight gain neonatal [Unknown]
  - Oliguria [Unknown]
  - Selective eating disorder [Unknown]
